FAERS Safety Report 18265017 (Version 1)
Quarter: 2020Q3

REPORT INFORMATION
  Report Type: Spontaneous
  Country: DE (occurrence: DE)
  Receive Date: 20200915
  Receipt Date: 20200915
  Transmission Date: 20201103
  Serious: Yes (Hospitalization)
  Sender: FDA-Public Use
  Company Number: DE-DRREDDYS-GER/GER/20/0126669

PATIENT
  Age: 76 Year
  Sex: Female

DRUGS (10)
  1. TRAZODON [Suspect]
     Active Substance: TRAZODONE HYDROCHLORIDE
     Dates: start: 20200415, end: 20200420
  2. MIRTAZAPINE. [Concomitant]
     Active Substance: MIRTAZAPINE
     Indication: PRODUCT USED FOR UNKNOWN INDICATION
     Dates: start: 20200402
  3. OLANZAPINE. [Suspect]
     Active Substance: OLANZAPINE
     Indication: PRODUCT USED FOR UNKNOWN INDICATION
     Dates: start: 20200410, end: 20200421
  4. ASPIRIN. [Concomitant]
     Active Substance: ASPIRIN
     Indication: PRODUCT USED FOR UNKNOWN INDICATION
  5. BISOPROLOL [Concomitant]
     Active Substance: BISOPROLOL
     Indication: PRODUCT USED FOR UNKNOWN INDICATION
  6. TRAZODON [Suspect]
     Active Substance: TRAZODONE HYDROCHLORIDE
     Dates: start: 20200331, end: 20200405
  7. ATORVASTATIN [Concomitant]
     Active Substance: ATORVASTATIN
     Indication: PRODUCT USED FOR UNKNOWN INDICATION
  8. OLANZAPINE. [Suspect]
     Active Substance: OLANZAPINE
     Dates: start: 20200402, end: 20200409
  9. TRAZODON [Suspect]
     Active Substance: TRAZODONE HYDROCHLORIDE
     Indication: PRODUCT USED FOR UNKNOWN INDICATION
     Dates: start: 20200406, end: 20200414
  10. SERTRALINE [Concomitant]
     Active Substance: SERTRALINE HYDROCHLORIDE
     Indication: PRODUCT USED FOR UNKNOWN INDICATION
     Dates: start: 20200301

REACTIONS (4)
  - Pleurothotonus [Recovered/Resolved]
  - Fall [Recovered/Resolved]
  - Gait disturbance [Recovered/Resolved]
  - Posture abnormal [Recovered/Resolved]

NARRATIVE: CASE EVENT DATE: 20200418
